FAERS Safety Report 6587907-4 (Version None)
Quarter: 2010Q1

REPORT INFORMATION
  Report Type: 
  Country: None (occurrence: None)
  Receive Date: 20100217
  Receipt Date: 20100217
  Transmission Date: 20100710
  Serious: Yes (Other)
  Sender: FDA-Public Use
  Company Number: None

PATIENT
  Sex: Female
  Weight: 77.3 kg

DRUGS (3)
  1. SLIMXTREME 500MG ANABOLIC XTREME [Suspect]
     Indication: APPETITE DISORDER
     Dosage: 1 CAPSULE TO START ONCE DAILY ORAL 2 CAPSULES ONCE DAILY IN A.M. ORAL
     Route: 048
     Dates: start: 20090501, end: 20090601
  2. SLIMXTREME 500MG ANABOLIC XTREME [Suspect]
     Indication: ASTHENIA
     Dosage: 1 CAPSULE TO START ONCE DAILY ORAL 2 CAPSULES ONCE DAILY IN A.M. ORAL
     Route: 048
     Dates: start: 20090501, end: 20090601
  3. SLIMXTREME 500MG ANABOLIC XTREME [Suspect]
     Indication: BODY FAT DISORDER
     Dosage: 1 CAPSULE TO START ONCE DAILY ORAL 2 CAPSULES ONCE DAILY IN A.M. ORAL
     Route: 048
     Dates: start: 20090501, end: 20090601

REACTIONS (6)
  - ANXIETY [None]
  - CARDIAC DISORDER [None]
  - DYSPNOEA [None]
  - INSOMNIA [None]
  - PALPITATIONS [None]
  - PRODUCT QUALITY ISSUE [None]
